FAERS Safety Report 10426640 (Version 1)
Quarter: 2014Q3

REPORT INFORMATION
  Report Type: Spontaneous
  Country: US (occurrence: None)
  Receive Date: 20140902
  Receipt Date: 20140902
  Transmission Date: 20150326
  Serious: Yes (Hospitalization, Disabling, Other)
  Sender: FDA-Public Use
  Company Number: None

PATIENT
  Age: 57 Year
  Sex: Male
  Weight: 70.31 kg

DRUGS (3)
  1. ARMOUR THYROID [Suspect]
     Active Substance: THYROID, PORCINE\THYROID, UNSPECIFIED
     Indication: HYPOTHYROIDISM
     Route: 048
     Dates: start: 20140501, end: 20140820
  2. ARMOUR THYROID [Suspect]
     Active Substance: THYROID, PORCINE\THYROID, UNSPECIFIED
     Indication: AUTOIMMUNE THYROIDITIS
     Route: 048
     Dates: start: 20140501, end: 20140820
  3. ARMOUR THYROID [Suspect]
     Active Substance: THYROID, PORCINE\THYROID, UNSPECIFIED
     Indication: RAYNAUD^S PHENOMENON
     Route: 048
     Dates: start: 20140501, end: 20140820

REACTIONS (11)
  - Device occlusion [None]
  - Dizziness [None]
  - Dyspnoea [None]
  - Syncope [None]
  - Constipation [None]
  - Nausea [None]
  - Hypersomnia [None]
  - Urticaria [None]
  - Hyperhidrosis [None]
  - Feeling abnormal [None]
  - Palpitations [None]

NARRATIVE: CASE EVENT DATE: 20140820
